FAERS Safety Report 7650896-5 (Version None)
Quarter: 2011Q3

REPORT INFORMATION
  Report Type: 
  Country: None (occurrence: None)
  Receive Date: 20110802
  Receipt Date: 20110718
  Transmission Date: 20111222
  Serious: Yes (Other)
  Sender: FDA-Public Use
  Company Number: FR-WATSON-2011-11165

PATIENT

DRUGS (1)
  1. VALPROATE SODIUM [Suspect]
     Indication: EPILEPSY
     Dosage: 1 G, BID
     Route: 048
     Dates: start: 20110301, end: 20110601

REACTIONS (1)
  - ANTICONVULSANT DRUG LEVEL ABNORMAL [None]
